FAERS Safety Report 9257430 (Version 4)
Quarter: 2013Q3

REPORT INFORMATION
  Report Type: Spontaneous
  Country: US (occurrence: US)
  Receive Date: 20130426
  Receipt Date: 20130709
  Transmission Date: 20140515
  Serious: Yes (Hospitalization, Other)
  Sender: FDA-Public Use
  Company Number: US-PFIZER INC-2013130103

PATIENT
  Age: 59 Year
  Sex: Male

DRUGS (4)
  1. CISPLATIN [Suspect]
     Indication: NON-SMALL CELL LUNG CANCER METASTATIC
     Dosage: UNK
     Dates: end: 201212
  2. CISPLATIN [Suspect]
     Indication: METASTASES TO CENTRAL NERVOUS SYSTEM
  3. PACLITAXEL [Suspect]
     Indication: NON-SMALL CELL LUNG CANCER METASTATIC
     Dosage: UNK
     Dates: end: 201212
  4. PACLITAXEL [Suspect]
     Indication: METASTASES TO CENTRAL NERVOUS SYSTEM

REACTIONS (28)
  - Upper gastrointestinal haemorrhage [Unknown]
  - Toxic neuropathy [Unknown]
  - Oesophageal candidiasis [Unknown]
  - Pulmonary embolism [Unknown]
  - Anaemia of chronic disease [Unknown]
  - Paralysis [Not Recovered/Not Resolved]
  - Vitamin D deficiency [Unknown]
  - Malnutrition [Unknown]
  - Herpes zoster [Unknown]
  - Constipation [Unknown]
  - Rectal haemorrhage [Unknown]
  - Neuropathy peripheral [Recovering/Resolving]
  - Sensory loss [Recovering/Resolving]
  - Abasia [Not Recovered/Not Resolved]
  - Deep vein thrombosis [Unknown]
  - Intestinal ulcer [Unknown]
  - Gastrointestinal haemorrhage [Unknown]
  - Electrolyte imbalance [Unknown]
  - Aphagia [Unknown]
  - Asthenia [Unknown]
  - Dehydration [Unknown]
  - Blood test abnormal [Unknown]
  - Malaise [Unknown]
  - Dyspnoea [Unknown]
  - Hypotonia [Unknown]
  - Weight decreased [Unknown]
  - Thrombosis [Unknown]
  - Muscle atrophy [Unknown]
